FAERS Safety Report 15398178 (Version 1)
Quarter: 2018Q3

REPORT INFORMATION
  Report Type: Spontaneous
  Country: FR (occurrence: FR)
  Receive Date: 20180918
  Receipt Date: 20180918
  Transmission Date: 20181010
  Serious: Yes (Other)
  Sender: FDA-Public Use
  Company Number: FR-TEVA-2018-FR-955498

PATIENT
  Age: 44 Year
  Sex: Male
  Weight: 115 kg

DRUGS (2)
  1. CODOLIPRANE ADULTES, COMPRIM? S?CABLE [Suspect]
     Active Substance: ACETAMINOPHEN\CODEINE PHOSPHATE
     Indication: MIGRAINE
     Route: 048
     Dates: start: 201703, end: 201703
  2. KETOPROFENE [Suspect]
     Active Substance: KETOPROFEN
     Indication: MIGRAINE
     Route: 048
     Dates: start: 201703, end: 201703

REACTIONS (1)
  - Angioedema [Recovered/Resolved]

NARRATIVE: CASE EVENT DATE: 201703
